FAERS Safety Report 8265178-0 (Version None)
Quarter: 2012Q2

REPORT INFORMATION
  Report Type: 
  Country: None (occurrence: None)
  Receive Date: 20120406
  Receipt Date: 20120323
  Transmission Date: 20120825
  Serious: Yes (Hospitalization)
  Sender: FDA-Public Use
  Company Number: CA-ROCHE-1052543

PATIENT
  Sex: Female
  Weight: 69.916 kg

DRUGS (9)
  1. RISEDRONATE SODIUM [Concomitant]
  2. ACTEMRA [Suspect]
     Indication: RHEUMATOID ARTHRITIS
     Route: 042
     Dates: start: 20111117, end: 20111214
  3. SULFASALAZINE [Concomitant]
  4. PLAQUENIL [Concomitant]
  5. PANTOPRAZOLE SODIUM [Concomitant]
  6. CALCIUM CARBONATE [Concomitant]
  7. PREDNISONE [Concomitant]
  8. VITAMIN D [Concomitant]
  9. NAPROXEN [Concomitant]

REACTIONS (1)
  - OSTEONECROSIS [None]
